FAERS Safety Report 7266833-1 (Version None)
Quarter: 2011Q1

REPORT INFORMATION
  Report Type: 
  Country: None (occurrence: None)
  Receive Date: 20110201
  Receipt Date: 20110121
  Transmission Date: 20110831
  Serious: Yes (Death)
  Sender: FDA-Public Use
  Company Number: IT-JNJFOC-20101107645

PATIENT
  Age: 70 Year
  Sex: Male
  Weight: 68 kg

DRUGS (22)
  1. EUTIROX [Concomitant]
     Indication: HYPOTHYROIDISM
     Route: 048
  2. TAVOR [Concomitant]
     Indication: ANXIETY
     Route: 048
  3. OXYCONTIN [Concomitant]
     Indication: PROPHYLAXIS
     Route: 048
  4. ZOFRAN [Concomitant]
     Indication: PROPHYLAXIS OF NAUSEA AND VOMITING
     Route: 065
  5. TAZOCIN [Concomitant]
     Indication: PYREXIA
     Route: 065
  6. VELCADE [Suspect]
     Indication: MULTIPLE MYELOMA
     Dosage: CYCLE 4
     Route: 042
  7. DEXAMETHASONE [Suspect]
     Indication: MULTIPLE MYELOMA
     Dosage: DAY 1-4
     Route: 042
  8. ZOFRAN [Concomitant]
     Route: 065
  9. DELTACORTENE [Concomitant]
     Route: 065
  10. CAELYX [Suspect]
     Indication: MULTIPLE MYELOMA
     Dosage: CYCLE 4
     Route: 042
  11. CAELYX [Suspect]
     Dosage: CYCLE 4
     Route: 042
  12. DEXAMETHASONE [Suspect]
     Dosage: DAY 1-4
     Route: 042
  13. LASIX [Concomitant]
     Route: 065
  14. ESKIM [Concomitant]
     Indication: DYSLIPIDAEMIA
     Route: 048
  15. CRESTOR [Concomitant]
     Indication: DYSLIPIDAEMIA
     Route: 048
  16. OXYCONTIN [Concomitant]
     Indication: NEUROPATHY PERIPHERAL
     Route: 048
  17. LYRICA [Concomitant]
     Indication: NEUROPATHY PERIPHERAL
     Route: 048
  18. VELCADE [Suspect]
     Dosage: CYCLE 4
     Route: 042
  19. LASIX [Concomitant]
     Indication: FLUID RETENTION
     Route: 065
  20. BACTRIM [Concomitant]
     Indication: PROPHYLAXIS
     Route: 048
  21. PRILOSEC [Concomitant]
     Indication: PROPHYLAXIS
     Route: 048
  22. CLEXANE [Concomitant]
     Indication: PROPHYLAXIS
     Route: 058

REACTIONS (1)
  - CEREBRAL HAEMORRHAGE [None]
